FAERS Safety Report 5737985-7 (Version None)
Quarter: 2008Q2

REPORT INFORMATION
  Report Type: 
  Country: None (occurrence: None)
  Receive Date: 20080508
  Receipt Date: 20071109
  Transmission Date: 20081010
  Serious: Yes (Life-Threatening, Hospitalization)
  Sender: FDA-Public Use
  Company Number: 42603

PATIENT
  Age: 25 Year
  Sex: Male
  Weight: 59.8748 kg

DRUGS (2)
  1. ACYCLOVIR [Suspect]
     Indication: ENCEPHALITIS
     Dosage: 700MG Q 8 HOURS IV
     Route: 042
     Dates: start: 20071106
  2. ACYCLOVIR [Suspect]
     Indication: ENCEPHALITIS
     Dosage: 700MG Q 8 HOURS IV
     Route: 042
     Dates: start: 20071106

REACTIONS (1)
  - ANAPHYLACTIC REACTION [None]
